FAERS Safety Report 5606795-3 (Version None)
Quarter: 2008Q1

REPORT INFORMATION
  Report Type: 
  Country: None (occurrence: None)
  Receive Date: 20080129
  Receipt Date: 20080116
  Transmission Date: 20080703
  Serious: No
  Sender: FDA-Public Use
  Company Number: CA-BAXTER-2008BH000529

PATIENT
  Age: 32 Year
  Sex: Female

DRUGS (3)
  1. GAMMAGARD S/D [Suspect]
     Indication: DRUG USE FOR UNKNOWN INDICATION
     Route: 042
  2. BENADRYL ^ACHE^ [Concomitant]
     Indication: DRUG USE FOR UNKNOWN INDICATION
     Dosage: DOSE UNIT:UNKNOWN
     Route: 065
  3. GRAVOL TAB [Concomitant]
     Indication: DRUG USE FOR UNKNOWN INDICATION
     Dosage: DOSE UNIT:UNKNOWN
     Route: 065

REACTIONS (4)
  - EYELID OEDEMA [None]
  - HYPERSENSITIVITY [None]
  - LIP SWELLING [None]
  - PRURITUS [None]
